FAERS Safety Report 7541649-7 (Version None)
Quarter: 2011Q2

REPORT INFORMATION
  Report Type: 
  Country: None (occurrence: None)
  Receive Date: 20110603
  Receipt Date: 20110524
  Transmission Date: 20111010
  Serious: Yes (Hospitalization)
  Sender: FDA-Public Use
  Company Number: 2011PL000074

PATIENT
  Age: 52 Year
  Sex: Male

DRUGS (1)
  1. AZATHIOPRINE [Suspect]
     Indication: COLITIS ULCERATIVE
     Dosage: 50 MG;
     Dates: start: 20051001

REACTIONS (9)
  - EMOTIONAL DISORDER [None]
  - COLITIS ULCERATIVE [None]
  - CONDITION AGGRAVATED [None]
  - ATRIAL FIBRILLATION [None]
  - DIZZINESS [None]
  - NAUSEA [None]
  - VOMITING [None]
  - MALAISE [None]
  - REFUSAL OF TREATMENT BY PATIENT [None]
